FAERS Safety Report 8474427-5 (Version None)
Quarter: 2012Q2

REPORT INFORMATION
  Report Type: 
  Country: None (occurrence: None)
  Receive Date: 20120621
  Receipt Date: 20120611
  Transmission Date: 20120825
  Serious: Yes (Other)
  Sender: FDA-Public Use
  Company Number: 217838

PATIENT
  Sex: Male

DRUGS (1)
  1. PICATO [Suspect]
     Indication: PRECANCEROUS SKIN LESION
     Dosage: (1 IN 1 D), TOPICAL
     Route: 061
     Dates: start: 20120511, end: 20120512

REACTIONS (6)
  - STAPHYLOCOCCAL INFECTION [None]
  - APPLICATION SITE ERYTHEMA [None]
  - MYALGIA [None]
  - APPLICATION SITE REACTION [None]
  - APPLICATION SITE VESICLES [None]
  - HYPERSENSITIVITY [None]
